FAERS Safety Report 7230868-5 (Version None)
Quarter: 2011Q1

REPORT INFORMATION
  Report Type: 
  Country: None (occurrence: None)
  Receive Date: 20110118
  Receipt Date: 20110114
  Transmission Date: 20110831
  Serious: Yes (Hospitalization, Other)
  Sender: FDA-Public Use
  Company Number: DE-PFIZER INC-2010102026

PATIENT
  Age: 62 Year
  Sex: Male

DRUGS (2)
  1. ZOLEDRONATE [Concomitant]
     Dosage: UNK
     Dates: start: 20060201
  2. SUTENT [Suspect]
     Indication: RENAL CELL CARCINOMA
     Dosage: 50 MG, 1X/DAY, 4-WEEK PERIODS, 2-WEEK BREAKS BETWEEN CYCLES
     Route: 048
     Dates: start: 20070201

REACTIONS (1)
  - OSTEONECROSIS OF JAW [None]
